FAERS Safety Report 4434101-9 (Version None)
Quarter: 2004Q3

REPORT INFORMATION
  Report Type: 
  Country: None (occurrence: None)
  Receive Date: 20040826
  Receipt Date: 20040806
  Transmission Date: 20050211
  Serious: Yes (Hospitalization, Other)
  Sender: FDA-Public Use
  Company Number: PHFR2004GB03103

PATIENT
  Age: 55 Year
  Sex: Female

DRUGS (5)
  1. GLEEVEC [Suspect]
     Indication: CHRONIC MYELOID LEUKAEMIA
     Dosage: 400MG/DAY
     Route: 048
     Dates: start: 20040113
  2. CETIRIZINE HCL [Concomitant]
     Indication: SEASONAL ALLERGY
     Dosage: 10MG/DAY SEASONAL
     Route: 048
  3. PROCHLORPERAZINE [Concomitant]
     Dosage: 5MG/DAY
     Route: 048
     Dates: start: 20040401
  4. MEFENAMIC ACID [Concomitant]
     Indication: NAUSEA
     Route: 048
     Dates: start: 19840101
  5. BECONASE [Concomitant]
     Indication: ASTHMA

REACTIONS (15)
  - DENTAL CARIES [None]
  - DENTAL DISCOMFORT [None]
  - DIARRHOEA [None]
  - DRY MOUTH [None]
  - FATIGUE [None]
  - GINGIVAL SWELLING [None]
  - IMPAIRED HEALING [None]
  - INFECTION [None]
  - LOWER RESPIRATORY TRACT INFECTION [None]
  - NAUSEA [None]
  - SWELLING [None]
  - TONSILLITIS [None]
  - TOOTH EXTRACTION [None]
  - TOOTH LOSS [None]
  - WEIGHT INCREASED [None]
